FAERS Safety Report 11281137 (Version 1)
Quarter: 2015Q3

REPORT INFORMATION
  Report Type: Report from Study
  Country: FR (occurrence: FR)
  Receive Date: 20150717
  Receipt Date: 20150717
  Transmission Date: 20151125
  Serious: Yes (Hospitalization)
  Sender: FDA-Public Use
  Company Number: FR-GLAXOSMITHKLINE-FR2015GSK102509

PATIENT
  Age: 60 Year
  Sex: Male

DRUGS (6)
  1. ODRIK [Concomitant]
     Active Substance: TRANDOLAPRIL
  2. KARDEGIC [Concomitant]
     Active Substance: ASPIRIN LYSINE
  3. PLAVIX [Concomitant]
     Active Substance: CLOPIDOGREL BISULFATE
  4. OMEGA-3-ACID ETHYL ESTERS. [Suspect]
     Active Substance: OMEGA-3-ACID ETHYL ESTERS
     Indication: ISCHAEMIC HEART DISEASE PROPHYLAXIS
     Dosage: UNK
     Dates: start: 20070615, end: 20081213
  5. AMLOR [Concomitant]
     Active Substance: AMLODIPINE BESYLATE
  6. TAHOR [Concomitant]
     Active Substance: ATORVASTATIN CALCIUM

REACTIONS (1)
  - Adverse event [Unknown]

NARRATIVE: CASE EVENT DATE: 20101201
